FAERS Safety Report 9284495 (Version 1)
Quarter: 2013Q2

REPORT INFORMATION
  Report Type: Spontaneous
  Country: GB (occurrence: GB)
  Receive Date: 20130510
  Receipt Date: 20130510
  Transmission Date: 20140414
  Serious: Yes (Hospitalization, Other)
  Sender: FDA-Public Use
  Company Number: GB-ELI_LILLY_AND_COMPANY-GB201305000614

PATIENT
  Sex: Female

DRUGS (6)
  1. HUMULIN NPH [Suspect]
     Indication: DIABETES MELLITUS
     Dosage: 22 U, EACH MORNING
     Route: 058
  2. HUMULIN NPH [Suspect]
     Dosage: 12 U, EACH EVENING
     Route: 058
  3. NIFEDIPINE [Concomitant]
     Dosage: 90 MG, UNK
  4. ATENOLOL [Concomitant]
     Dosage: 75 MG, UNK
  5. ASPIRIN [Concomitant]
  6. VITAMIN D [Concomitant]

REACTIONS (3)
  - Renal disorder [Unknown]
  - Malaise [Unknown]
  - Blood pressure increased [Recovering/Resolving]
